FAERS Safety Report 6291255-X (Version None)
Quarter: 2009Q3

REPORT INFORMATION
  Report Type: 
  Country: None (occurrence: None)
  Receive Date: 20090730
  Receipt Date: 20090720
  Transmission Date: 20100115
  Serious: Yes (Hospitalization)
  Sender: FDA-Public Use
  Company Number: US-PFIZER INC-2008087270

PATIENT
  Sex: Male
  Weight: 101.2 kg

DRUGS (16)
  1. NAPROXEN [Suspect]
     Indication: OSTEOARTHRITIS
     Dosage: FREQUENCY: BID; INTERVAL: DAILY
     Route: 048
     Dates: start: 20080607, end: 20080810
  2. BLINDED *NO SUBJECT DRUG [Suspect]
     Indication: OSTEOARTHRITIS
     Dosage: FREQUENCY: BID; INTERVAL: DAILY
     Route: 048
     Dates: start: 20080607, end: 20080810
  3. BLINDED *PLACEBO [Suspect]
     Indication: OSTEOARTHRITIS
     Dosage: FREQUENCY: BID; INTERVAL: DAILY
     Route: 048
     Dates: start: 20080607, end: 20080810
  4. BLINDED CELECOXIB [Suspect]
     Indication: OSTEOARTHRITIS
     Dosage: FREQUENCY: BID; INTERVAL: DAILY
     Route: 048
     Dates: start: 20080607, end: 20080810
  5. IBUPROFEN [Suspect]
     Indication: OSTEOARTHRITIS
     Dosage: FREQUENCY: BID; INTERVAL: DAILY
     Route: 048
     Dates: start: 20080607, end: 20080810
  6. NAPROXEN [Suspect]
     Dosage: FREQUENCY: BID; INTERVAL: DAILY
     Route: 048
     Dates: start: 20080607, end: 20080810
  7. PRAZSOIN HCL [Suspect]
     Dosage: UNK
     Route: 048
     Dates: start: 20070101
  8. NEXIUM [Concomitant]
     Dosage: UNK
     Route: 048
     Dates: start: 20080607, end: 20080810
  9. ACETYLSALICYLIC ACID [Concomitant]
     Route: 048
     Dates: start: 20030101
  10. BENAZEPRIL HYDROCHLORIDE [Concomitant]
     Route: 048
     Dates: start: 20030101
  11. METOPROLOL TARTRATE [Concomitant]
     Route: 048
     Dates: start: 20030101
  12. LOVASTATIN [Concomitant]
     Route: 048
     Dates: start: 20080429
  13. HYDROCHLOROTHIAZIDE [Concomitant]
     Route: 048
     Dates: start: 20070726
  14. MULTI-VITAMINS [Concomitant]
     Route: 048
     Dates: start: 20050101
  15. DIPHENHYDRAMINE HCL [Concomitant]
     Route: 048
     Dates: start: 20050101
  16. PSYLLIUM [Concomitant]
     Route: 048
     Dates: start: 20050101

REACTIONS (5)
  - ACUTE MYOCARDIAL INFARCTION [None]
  - ATELECTASIS [None]
  - COSTOCHONDRITIS [None]
  - HYPOTENSION [None]
  - MYOCARDIAL ISCHAEMIA [None]
